FAERS Safety Report 16854366 (Version 2)
Quarter: 2022Q3

REPORT INFORMATION
  Report Type: Spontaneous
  Country: BE (occurrence: BE)
  Receive Date: 20190926
  Receipt Date: 20220916
  Transmission Date: 20221027
  Serious: Yes (Death, Other)
  Sender: FDA-Public Use
  Company Number: BE-CELGENE-BEL-2016074220

PATIENT
  Age: 65 Year
  Sex: Female
  Weight: 71 kg

DRUGS (12)
  1. ARANESP [Suspect]
     Active Substance: DARBEPOETIN ALFA
     Indication: Myelodysplastic syndrome
     Dosage: 300 MICROGRAM, Q4WK
     Route: 058
     Dates: start: 20160513, end: 20160804
  2. ARANESP [Suspect]
     Active Substance: DARBEPOETIN ALFA
     Indication: Anaemia
     Dosage: 300 MICROGRAM, Q4WK
     Route: 058
     Dates: start: 20160826
  3. REVLIMID [Suspect]
     Active Substance: LENALIDOMIDE
     Indication: Myelodysplastic syndrome
     Dosage: 210 MILLIGRAM
     Route: 048
     Dates: start: 20141007, end: 20151001
  4. REVLIMID [Suspect]
     Active Substance: LENALIDOMIDE
     Dosage: 105 MILLIGRAM
     Route: 048
     Dates: start: 20151002, end: 20160826
  5. REVLIMID [Suspect]
     Active Substance: LENALIDOMIDE
     Dosage: 105 MILLIGRAM
     Route: 048
     Dates: start: 20161014
  6. PRAVASTATIN [Concomitant]
     Active Substance: PRAVASTATIN
     Indication: Prophylaxis
     Dosage: 20 MILLIGRAM
     Route: 065
  7. INSULIN NOS [Concomitant]
     Active Substance: INSULIN NOS
     Indication: Diabetes mellitus
     Dosage: UNK
     Route: 065
  8. GLUCOPHAGE [Concomitant]
     Active Substance: METFORMIN HYDROCHLORIDE
     Indication: Diabetes mellitus
     Dosage: UNK
     Route: 065
  9. ASPIRIN [Concomitant]
     Active Substance: ASPIRIN
     Indication: Thrombosis prophylaxis
     Dosage: UNK
     Route: 065
  10. INDAPAMIDE\PERINDOPRIL [Concomitant]
     Active Substance: INDAPAMIDE\PERINDOPRIL
     Indication: Hypertension
     Dosage: UNK
     Route: 065
  11. LEVOTHYROXINE [Concomitant]
     Active Substance: LEVOTHYROXINE
     Indication: Hyperthyroidism
     Dosage: 100 UG
     Route: 065
  12. METHIMAZOLE [Concomitant]
     Active Substance: METHIMAZOLE
     Indication: Hyperthyroidism
     Dosage: 20 MILLIGRAM
     Route: 065
     Dates: start: 20141218

REACTIONS (4)
  - Pneumonia [Fatal]
  - Neutropenia [Recovered/Resolved]
  - Neutropenia [Recovered/Resolved]
  - Muscle spasms [Recovered/Resolved]

NARRATIVE: CASE EVENT DATE: 20160704
